FAERS Safety Report 6838900-5 (Version None)
Quarter: 2010Q3

REPORT INFORMATION
  Report Type: 
  Country: None (occurrence: None)
  Receive Date: 20100713
  Receipt Date: 20070804
  Transmission Date: 20110219
  Serious: No
  Sender: FDA-Public Use
  Company Number: US-PFIZER INC-2007042410

PATIENT
  Sex: Male
  Weight: 75 kg

DRUGS (5)
  1. CHANTIX [Suspect]
     Indication: SMOKING CESSATION THERAPY
     Dates: start: 20070514
  2. LEXAPRO [Interacting]
  3. ACETYLSALICYLIC ACID [Concomitant]
     Indication: PAIN
  4. ALEVE (CAPLET) [Concomitant]
     Indication: PAIN
  5. OPIOIDS [Concomitant]

REACTIONS (6)
  - DIZZINESS [None]
  - DRUG INTERACTION [None]
  - EMOTIONAL DISORDER [None]
  - IRRITABILITY [None]
  - MALAISE [None]
  - NAUSEA [None]
